FAERS Safety Report 9287379 (Version 1)
Quarter: 2013Q2

REPORT INFORMATION
  Report Type: Spontaneous
  Country: IN (occurrence: IN)
  Receive Date: 20130514
  Receipt Date: 20130514
  Transmission Date: 20140414
  Serious: Yes (Death)
  Sender: FDA-Public Use
  Company Number: IN-009507513-1305IND006824

PATIENT
  Sex: 0

DRUGS (2)
  1. VIRAFERONPEG [Suspect]
     Dosage: 80 MICROGRAM, UNK
     Dates: end: 2013
  2. REBETOL [Suspect]
     Dosage: UNK

REACTIONS (1)
  - Death [Fatal]
